FAERS Safety Report 5833459-3 (Version None)
Quarter: 2008Q3

REPORT INFORMATION
  Report Type: 
  Country: None (occurrence: None)
  Receive Date: 20080804
  Receipt Date: 20080804
  Transmission Date: 20090109
  Serious: Yes (Other)
  Sender: FDA-Public Use
  Company Number: None

PATIENT
  Sex: Female
  Weight: 57.6068 kg

DRUGS (1)
  1. INDERAL [Suspect]
     Indication: MIGRAINE
     Dosage: 80MG PO QD
     Route: 048
     Dates: start: 20030101

REACTIONS (4)
  - HEADACHE [None]
  - PALPITATIONS [None]
  - THERAPEUTIC RESPONSE DECREASED [None]
  - THERAPEUTIC RESPONSE UNEXPECTED WITH DRUG SUBSTITUTION [None]
